FAERS Safety Report 22157609 (Version 1)
Quarter: 2023Q1

REPORT INFORMATION
  Report Type: Spontaneous
  Country: US (occurrence: US)
  Receive Date: 20230330
  Receipt Date: 20230330
  Transmission Date: 20230417
  Serious: No
  Sender: FDA-Public Use
  Company Number: US-AMYLYX PHARMACEUTICALS, INC-AMX-001808

PATIENT
  Age: 69 Year
  Sex: Female
  Weight: 61.678 kg

DRUGS (5)
  1. RELYVRIO [Suspect]
     Active Substance: SODIUM PHENYLBUTYRATE\TAURURSODIOL
     Indication: Amyotrophic lateral sclerosis
     Dosage: 1 SACHET ONCE DAILY FOR 3 WEEKS, THEN 1 SACHET TWICE DAILY
     Route: 048
     Dates: start: 20230303, end: 20230310
  2. METFORMIN [Concomitant]
     Active Substance: METFORMIN HYDROCHLORIDE
     Indication: Amyotrophic lateral sclerosis
  3. POTASSIUM K 20 [Concomitant]
     Indication: Atrial fibrillation
  4. RILUZOLE [Concomitant]
     Active Substance: RILUZOLE
     Indication: Amyotrophic lateral sclerosis
     Dosage: UNK
  5. RADICAVA [Concomitant]
     Active Substance: EDARAVONE
     Indication: Amyotrophic lateral sclerosis
     Dosage: UNK

REACTIONS (7)
  - Oral pain [Unknown]
  - Vomiting [Unknown]
  - Dysphagia [Unknown]
  - Retching [Unknown]
  - Nausea [Unknown]
  - Product use complaint [Unknown]
  - Inappropriate schedule of product administration [Unknown]

NARRATIVE: CASE EVENT DATE: 20230303
